FAERS Safety Report 8291295-5 (Version None)
Quarter: 2012Q2

REPORT INFORMATION
  Report Type: 
  Country: None (occurrence: None)
  Receive Date: 20120417
  Receipt Date: 20120402
  Transmission Date: 20120825
  Serious: Yes (Death)
  Sender: FDA-Public Use
  Company Number: DE-WATSON-2012-06074

PATIENT
  Age: 66 Year
  Sex: Male

DRUGS (3)
  1. METFORMIN HCL [Suspect]
     Indication: TYPE 2 DIABETES MELLITUS
     Dosage: 2000 MG DAILY
     Route: 048
  2. TORSEMIDE [Concomitant]
     Indication: CARDIAC FAILURE
     Dosage: 5 MG DAILY
     Route: 048
  3. COTRIM DS [Concomitant]
     Indication: URINARY TRACT INFECTION
     Dosage: 1920 MG DAILY
     Route: 048
     Dates: start: 20110926, end: 20110927

REACTIONS (2)
  - LACTIC ACIDOSIS [None]
  - RENAL FAILURE ACUTE [None]
